FAERS Safety Report 7034131-7 (Version None)
Quarter: 2010Q4

REPORT INFORMATION
  Report Type: 
  Country: None (occurrence: None)
  Receive Date: 20101008
  Receipt Date: 20100928
  Transmission Date: 20110411
  Serious: Yes (Other)
  Sender: FDA-Public Use
  Company Number: US-BAYER-201035923NA

PATIENT
  Sex: Female

DRUGS (2)
  1. YAZ [Suspect]
     Route: 048
     Dates: start: 20010101, end: 20060101
  2. YASMIN [Suspect]
     Route: 048
     Dates: start: 20010101, end: 20060101

REACTIONS (1)
  - GALLBLADDER DISORDER [None]
